FAERS Safety Report 20769655 (Version 1)
Quarter: 2022Q2

REPORT INFORMATION
  Report Type: Spontaneous
  Country: IT (occurrence: IT)
  Receive Date: 20220429
  Receipt Date: 20220429
  Transmission Date: 20220721
  Serious: Yes (Hospitalization, Other)
  Sender: FDA-Public Use
  Company Number: None

PATIENT
  Age: 73 Year
  Sex: Male
  Weight: 108 kg

DRUGS (1)
  1. ELIQUIS [Suspect]
     Active Substance: APIXABAN
     Indication: Thrombosis prophylaxis
     Route: 065
     Dates: start: 20191207, end: 20220330

REACTIONS (2)
  - Cerebrovascular accident [Recovered/Resolved with Sequelae]
  - Polycythaemia vera [Recovered/Resolved with Sequelae]

NARRATIVE: CASE EVENT DATE: 20220329
